FAERS Safety Report 4771282-1 (Version None)
Quarter: 2005Q3

REPORT INFORMATION
  Report Type: 
  Country: None (occurrence: None)
  Receive Date: 20050914
  Receipt Date: 20050829
  Transmission Date: 20060218
  Serious: Yes (Hospitalization)
  Sender: FDA-Public Use
  Company Number: US_0508120565

PATIENT
  Age: 85 Year
  Sex: Female
  Weight: 47 kg

DRUGS (2)
  1. TERIPARATIDE [Suspect]
     Indication: OSTEOPOROSIS
     Dosage: 20 UG DAY
     Dates: start: 20050501, end: 20050612
  2. FLAGYL [Concomitant]

REACTIONS (10)
  - ABDOMINAL PAIN UPPER [None]
  - ASTHENIA [None]
  - CAROTID ARTERY OCCLUSION [None]
  - CHOLELITHIASIS [None]
  - DIARRHOEA [None]
  - HEADACHE [None]
  - MYOCARDIAL INFARCTION [None]
  - PANCREATITIS ACUTE [None]
  - PROCEDURAL COMPLICATION [None]
  - VOMITING [None]
